FAERS Safety Report 6018841-6 (Version None)
Quarter: 2008Q4

REPORT INFORMATION
  Report Type: 
  Country: None (occurrence: None)
  Receive Date: 20081224
  Receipt Date: 20081215
  Transmission Date: 20090506
  Serious: Yes (Death)
  Sender: FDA-Public Use
  Company Number: US-PFIZER INC-2008154064

PATIENT
  Age: 37 Year
  Sex: Male

DRUGS (13)
  1. LITHIUM CARBONATE [Suspect]
  2. CLONAZEPAM [Suspect]
  3. BUPROPION [Suspect]
  4. QUETIAPINE [Suspect]
  5. BACLOFEN [Suspect]
  6. PROMETHAZINE [Suspect]
  7. DULOXETINE [Suspect]
  8. ZOLPIDEM [Suspect]
  9. LEVOTHYROXINE [Suspect]
  10. LAMOTRIGINE [Suspect]
  11. EFAVIRENZ [Suspect]
  12. EMTRICITABINE/TENOFOVIR DISOPROXIL FUMARATE [Suspect]
  13. METHADONE [Suspect]

REACTIONS (2)
  - CARDIO-RESPIRATORY ARREST [None]
  - COMPLETED SUICIDE [None]
